FAERS Safety Report 5966460-X (Version None)
Quarter: 2008Q4

REPORT INFORMATION
  Report Type: 
  Country: None (occurrence: None)
  Receive Date: 20081125
  Receipt Date: 20081114
  Transmission Date: 20090506
  Serious: Yes (Other)
  Sender: FDA-Public Use
  Company Number: SK-ROCHE-596139

PATIENT
  Age: 47 Year
  Sex: Female

DRUGS (7)
  1. ROFERON-A [Suspect]
     Indication: MYELOPROLIFERATIVE DISORDER
     Dosage: DOSAGE: 9 ML PER WEEK.
     Route: 065
     Dates: start: 20080512
  2. ROFERON-A [Suspect]
     Dosage: DOSING REGIMEN REPORTED AS 6-3-6.
     Route: 065
     Dates: start: 20080801
  3. ROFERON-A [Suspect]
     Dosage: DOSING REGIMEN REPORTED AS 6-6-6.
     Route: 065
     Dates: start: 20080901
  4. ROFERON-A [Suspect]
     Dosage: DOSING REGIMEN REPORTED AS 6-6-6-6.
     Route: 065
     Dates: start: 20081007, end: 20081103
  5. ANOPYRIN [Concomitant]
     Dates: start: 20070501
  6. FAMOTIDIN [Concomitant]
     Dosage: FREQUENCY: ACCORDING TO NEEDS.
     Dates: start: 20070501
  7. PARALEN [Concomitant]
     Dosage: FREQUENCY: ACCORDING TO NEEDS. PREMEDICATION OF INTERFERON ALFA-2A.

REACTIONS (2)
  - ALOPECIA [None]
  - THYROIDITIS [None]
